FAERS Safety Report 6690001-5 (Version None)
Quarter: 2010Q2

REPORT INFORMATION
  Report Type: 
  Country: None (occurrence: None)
  Receive Date: 20100421
  Receipt Date: 20100408
  Transmission Date: 20101027
  Serious: Yes (Hospitalization, Other)
  Sender: FDA-Public Use
  Company Number: PHEH2010US03280

PATIENT
  Sex: Female
  Weight: 55 kg

DRUGS (6)
  1. EXJADE [Suspect]
     Indication: IRON OVERLOAD
     Dosage: 1000 MG, UNK
     Route: 048
     Dates: start: 20100308, end: 20100318
  2. EXJADE [Suspect]
     Dosage: 1000 MG, UNK
     Route: 048
     Dates: start: 20100331
  3. PRAVASTATIN [Concomitant]
     Dosage: 20 MG DAILY
     Route: 048
  4. VITAMIN B-12 [Concomitant]
     Dosage: 500 MG DAILY
     Route: 048
  5. PROPRANOLOL [Concomitant]
     Dosage: 80 MG DAILY
     Route: 048
  6. SYNTHROID [Concomitant]
     Dosage: 88 MG DAILY

REACTIONS (3)
  - ALPHA HAEMOLYTIC STREPTOCOCCAL INFECTION [None]
  - PYREXIA [None]
  - RASH MACULO-PAPULAR [None]
